FAERS Safety Report 11521663 (Version 1)
Quarter: 2015Q3

REPORT INFORMATION
  Report Type: Spontaneous
  Country: US (occurrence: US)
  Receive Date: 20150918
  Receipt Date: 20150918
  Transmission Date: 20151125
  Serious: No
  Sender: FDA-Public Use
  Company Number: US-ROCHE-722170

PATIENT
  Sex: Male

DRUGS (2)
  1. PEGASYS [Suspect]
     Active Substance: PEGINTERFERON ALFA-2A
     Indication: HEPATITIS C
     Dosage: FORM: PRE-FILLED SYRINGE
     Route: 065
  2. RIBAVIRIN. [Suspect]
     Active Substance: RIBAVIRIN
     Indication: HEPATITIS C
     Dosage: DIVIDED DOSES
     Route: 048

REACTIONS (11)
  - Fatigue [Unknown]
  - Chapped lips [Unknown]
  - Hypophagia [Not Recovered/Not Resolved]
  - Skin ulcer [Unknown]
  - Mental impairment [Unknown]
  - Abasia [Unknown]
  - Joint instability [Unknown]
  - Depressed mood [Not Recovered/Not Resolved]
  - Hyperhidrosis [Unknown]
  - Ill-defined disorder [Unknown]
  - Insomnia [Not Recovered/Not Resolved]
